FAERS Safety Report 13789306 (Version 1)
Quarter: 2017Q3

REPORT INFORMATION
  Report Type: Spontaneous
  Country: US (occurrence: US)
  Receive Date: 20170725
  Receipt Date: 20170725
  Transmission Date: 20171127
  Serious: No
  Sender: FDA-Public Use
  Company Number: US-UNITED THERAPEUTICS-UNT-2016-019674

PATIENT
  Age: 64 Year
  Sex: Female
  Weight: 74.38 kg

DRUGS (6)
  1. REMODULIN [Suspect]
     Active Substance: TREPROSTINIL
     Indication: PULMONARY HYPERTENSION
     Dosage: 0.030 ?G/KG, CONTINUING
     Route: 058
     Dates: start: 20161019
  2. ADCIRCA [Suspect]
     Active Substance: TADALAFIL
     Indication: PRODUCT USED FOR UNKNOWN INDICATION
     Dosage: UNK
     Route: 065
  3. REMODULIN [Suspect]
     Active Substance: TREPROSTINIL
     Dosage: 0.033 ?G/KG, CONTINUING
     Route: 058
  4. ADCIRCA [Suspect]
     Active Substance: TADALAFIL
     Dosage: 1 TABLET, TWICE A DAY
     Route: 065
  5. ADCIRCA [Suspect]
     Active Substance: TADALAFIL
     Dosage: 2 TABLETS AT THE SAME TIME
     Route: 065
  6. REMODULIN [Suspect]
     Active Substance: TREPROSTINIL
     Dosage: 0.039 ?G/KG, CONTINUING
     Route: 058

REACTIONS (4)
  - Headache [Not Recovered/Not Resolved]
  - Pain in extremity [Unknown]
  - Infusion site irritation [Unknown]
  - Muscle spasms [Unknown]

NARRATIVE: CASE EVENT DATE: 20161216
